FAERS Safety Report 18783104 (Version 2)
Quarter: 2021Q2

REPORT INFORMATION
  Report Type: Spontaneous
  Country: US (occurrence: US)
  Receive Date: 20210125
  Receipt Date: 20210416
  Transmission Date: 20210717
  Serious: No
  Sender: FDA-Public Use
  Company Number: US-JNJFOC-20210121450

PATIENT
  Age: 79 Year
  Sex: Male

DRUGS (9)
  1. MIDODRINE [Concomitant]
     Active Substance: MIDODRINE
     Dosage: TAKEN IN AM
  2. BALVERSA [Suspect]
     Active Substance: ERDAFITINIB
     Indication: BLADDER CANCER
     Dosage: 2 X 3MG
     Route: 048
  3. VITAMIN D3 [Concomitant]
     Active Substance: CHOLECALCIFEROL
     Dosage: TAKEN IN AM
  4. ZINC. [Concomitant]
     Active Substance: ZINC
     Dosage: TAKEN IN AM
  5. METOPROLOL. [Concomitant]
     Active Substance: METOPROLOL
     Dosage: DIVIDED IN HALF TWICE A DAY
  6. LEVOTHYROXINE. [Concomitant]
     Active Substance: LEVOTHYROXINE
     Dosage: TAKEN IN AM?88 MCG
  7. MAGNESIUM HYDRATE [Concomitant]
     Dosage: TAKEN IN AM
  8. P COL RITE [Concomitant]
     Indication: CONSTIPATION
     Dosage: TAKEN IN AM
  9. ASPRIN [Concomitant]
     Active Substance: ASPIRIN
     Dosage: TAKEN IN AM

REACTIONS (4)
  - Stomatitis [Recovered/Resolved]
  - Weight decreased [Recovered/Resolved]
  - Lip pain [Recovered/Resolved]
  - Oropharyngeal pain [Recovered/Resolved]

NARRATIVE: CASE EVENT DATE: 202004
